FAERS Safety Report 13449875 (Version 1)
Quarter: 2017Q2

REPORT INFORMATION
  Report Type: Spontaneous
  Country: US (occurrence: US)
  Receive Date: 20170417
  Receipt Date: 20170417
  Transmission Date: 20170830
  Serious: No
  Sender: FDA-Public Use
  Company Number: US-BION-20160183

PATIENT
  Age: 61 Year
  Sex: Female

DRUGS (5)
  1. NIFEDICAL XL [Concomitant]
     Active Substance: NIFEDIPINE
  2. ASPIRIN. [Concomitant]
     Active Substance: ASPIRIN
  3. ALEVE [Suspect]
     Active Substance: NAPROXEN SODIUM
     Indication: PAIN
     Dosage: 2 DF AND 1- 12 HOURS LATER
     Route: 048
     Dates: start: 20160524, end: 20160524
  4. LISINOPRIL. [Concomitant]
     Active Substance: LISINOPRIL
  5. ATORVASTATIN [Concomitant]
     Active Substance: ATORVASTATIN

REACTIONS (5)
  - Lip pain [Recovered/Resolved]
  - Oral pain [Recovered/Resolved]
  - Tongue discomfort [Recovered/Resolved]
  - Oral discomfort [Recovered/Resolved]
  - Glossodynia [Recovered/Resolved]

NARRATIVE: CASE EVENT DATE: 20160524
